FAERS Safety Report 4571738-0 (Version None)
Quarter: 2005Q1

REPORT INFORMATION
  Report Type: 
  Country: None (occurrence: None)
  Receive Date: 20050202
  Receipt Date: 20050202
  Transmission Date: 20050727
  Serious: Yes (Hospitalization)
  Sender: FDA-Public Use
  Company Number: None

PATIENT
  Age: 83 Year
  Sex: Male
  Weight: 72.7 kg

DRUGS (3)
  1. LOVENOX [Suspect]
     Indication: MYOCARDIAL INFARCTION
     Dosage: 70 MG   Q12H   SUBCUTANEOU
     Route: 058
     Dates: start: 20041221, end: 20041222
  2. ASPIRIN [Concomitant]
  3. PLAVIX [Concomitant]

REACTIONS (8)
  - HAEMATOMA [None]
  - HAEMOGLOBIN DECREASED [None]
  - HYPOTENSION [None]
  - ILEUS [None]
  - INTESTINAL ISCHAEMIA [None]
  - ISCHAEMIC HEPATITIS [None]
  - MEDICATION ERROR [None]
  - RENAL FAILURE ACUTE [None]
